FAERS Safety Report 8084158-1 (Version None)
Quarter: 2012Q1

REPORT INFORMATION
  Report Type: 
  Country: None (occurrence: None)
  Receive Date: 20120128
  Receipt Date: 20110208
  Transmission Date: 20120608
  Serious: No
  Sender: FDA-Public Use
  Company Number: US-ABBOTT-11P-163-0704805-00

PATIENT
  Sex: Male
  Weight: 74.91 kg

DRUGS (4)
  1. ASACOL [Concomitant]
     Indication: CROHN'S DISEASE
  2. METFFORMIN HYDROCHLORIDE [Concomitant]
     Indication: DIABETES MELLITUS
  3. HUMIRA [Suspect]
     Indication: CROHN'S DISEASE
     Dates: start: 20080101
  4. GLYBURIDE [Concomitant]
     Indication: DIABETES MELLITUS

REACTIONS (2)
  - RECTAL HAEMORRHAGE [None]
  - GASTROINTESTINAL HAEMORRHAGE [None]
